FAERS Safety Report 5847470-X (Version None)
Quarter: 2008Q3

REPORT INFORMATION
  Report Type: 
  Country: None (occurrence: None)
  Receive Date: 20080813
  Receipt Date: 20080804
  Transmission Date: 20090109
  Serious: Yes (Hospitalization, Other)
  Sender: FDA-Public Use
  Company Number: GXKR2008AU07307

PATIENT
  Age: 79 Year
  Sex: Female

DRUGS (4)
  1. MIRTAZAPINE [Suspect]
     Indication: DEPRESSION
     Dosage: 30 MG, QD
  2. FUROSEMIDE (FUROSEMIDE) [Concomitant]
  3. RAMIPRIL [Concomitant]
  4. METOPROLOL TARTRATE [Concomitant]

REACTIONS (4)
  - BLOOD OSMOLARITY DECREASED [None]
  - CONFUSIONAL STATE [None]
  - HYPONATRAEMIA [None]
  - LABORATORY TEST ABNORMAL [None]
